FAERS Safety Report 8018961 (Version 6)
Quarter: 2013Q2

REPORT INFORMATION
  Report Type: Spontaneous
  Country: US (occurrence: US)
  Receive Date: 20110701
  Receipt Date: 20120703
  Transmission Date: 20140414
  Serious: Yes (Other)
  Sender: FDA-Public Use
  Company Number: PHHY2011US56289

PATIENT
  Age: 37 Year
  Sex: Female
  Weight: 84.4 kg

DRUGS (6)
  1. GILENYA [Suspect]
     Indication: RELAPSING-REMITTING MULTIPLE SCLEROSIS
     Route: 048
     Dates: start: 20110602
  2. KLONOPIN [Concomitant]
     Indication: TREMOR
     Dosage: 1 MG/DAILY
     Dates: start: 20091109
  3. AMBIEN CR [Concomitant]
     Indication: INSOMNIA
     Dosage: 12.5 MG, UNK
     Dates: start: 20110111
  4. AMBIEN [Concomitant]
     Dosage: UNK UKN, UNK
     Dates: start: 20120226
  5. STEROIDS NOS [Concomitant]
     Dosage: UNK UKN, OT
     Dates: end: 20120224
  6. WELLBUTRIN [Concomitant]
     Indication: DEPRESSION
     Dosage: 1 TAB 9 AM
     Route: 048
     Dates: start: 20110111

REACTIONS (11)
  - HERPES ZOSTER [Recovered/Resolved]
  - RASH PUSTULAR [Not Recovered/Not Resolved]
  - PAIN [Not Recovered/Not Resolved]
  - CHEST PAIN [Recovered/Resolved]
  - BLOOD PRESSURE DECREASED [Recovered/Resolved]
  - ABDOMINAL PAIN UPPER [Unknown]
  - FATIGUE [Not Recovered/Not Resolved]
  - STRESS [Unknown]
  - DYSPNOEA [Not Recovered/Not Resolved]
  - HEADACHE [Unknown]
  - MULTIPLE SCLEROSIS RELAPSE [Recovered/Resolved]
